FAERS Safety Report 7764830-0 (Version None)
Quarter: 2011Q3

REPORT INFORMATION
  Report Type: 
  Country: None (occurrence: None)
  Receive Date: 20110921
  Receipt Date: 20110916
  Transmission Date: 20111222
  Serious: Yes (Hospitalization, Other)
  Sender: FDA-Public Use
  Company Number: US-PFIZER INC-2006062874

PATIENT
  Sex: Female
  Weight: 112 kg

DRUGS (10)
  1. ACETYLSALICYLIC ACID [Concomitant]
  2. MAGNESIUM HYDROXIDE TAB [Concomitant]
     Indication: GASTROOESOPHAGEAL REFLUX DISEASE
     Dosage: UNK
     Route: 048
     Dates: start: 20051116
  3. OMEPRAZOLE [Concomitant]
     Indication: GASTROOESOPHAGEAL REFLUX DISEASE
     Dosage: UNK
     Route: 048
     Dates: start: 20060101
  4. ACETYLSALICYLIC ACID [Concomitant]
     Indication: PAIN
     Dosage: UNK
     Route: 048
     Dates: start: 20050101
  5. SUNITINIB MALATE [Suspect]
     Dosage: 50 MG, FREQUENCY: 1/DAY, INTERVAL: 4/2SCHEDULE
     Route: 048
     Dates: start: 20060524, end: 20060620
  6. ACETAMINOPHEN [Concomitant]
     Indication: ARTHRITIS
     Dosage: UNK
     Route: 048
     Dates: start: 20050201
  7. SUNITINIB MALATE [Suspect]
     Dosage: 37.5 MG, FREQUENCY: 1/DAY, INTERVAL: 4/2SCHEDULE
     Route: 048
     Dates: start: 20060705, end: 20060801
  8. SUNITINIB MALATE [Suspect]
     Indication: RENAL CELL CARCINOMA
     Dosage: 50 MG, CYCLIC EVERY DAY: 4 WEEKS ON/2 WEEKS OFF
     Route: 048
     Dates: start: 20051027
  9. SUNITINIB MALATE [Suspect]
     Dosage: 50 MG, FREQUENCY: 1/DAY, INTERVAL: 4/2SCHEDULE
     Route: 048
     Dates: start: 20060412, end: 20060509
  10. PAROXETINE [Concomitant]
     Indication: DEPRESSION
     Dosage: UNK
     Route: 048
     Dates: start: 20011001

REACTIONS (14)
  - ANAEMIA [None]
  - HYPOKALAEMIA [None]
  - DECREASED APPETITE [None]
  - DEHYDRATION [None]
  - GASTROINTESTINAL HAEMORRHAGE [None]
  - ABDOMINAL PAIN UPPER [None]
  - HAEMOGLOBIN DECREASED [None]
  - PAIN [None]
  - URINARY TRACT INFECTION [None]
  - GASTROINTESTINAL INFLAMMATION [None]
  - HYPOVOLAEMIA [None]
  - HYPONATRAEMIA [None]
  - FATIGUE [None]
  - MENTAL STATUS CHANGES [None]
